FAERS Safety Report 4528503-X (Version None)
Quarter: 2004Q4

REPORT INFORMATION
  Report Type: 
  Country: None (occurrence: None)
  Receive Date: 20041216
  Receipt Date: 20041203
  Transmission Date: 20050328
  Serious: Yes (Life-Threatening, Hospitalization)
  Sender: FDA-Public Use
  Company Number: US-BRISTOL-MYERS SQUIBB COMPANY-12789202

PATIENT
  Age: 57 Year
  Sex: Male
  Weight: 85 kg

DRUGS (8)
  1. EFAVIRENZ CAPS [Suspect]
     Indication: HIV INFECTION
     Dosage: LAST TAKEN ON 25-OCT-2004
     Route: 048
     Dates: start: 20030905
  2. LAMIVUDINE [Suspect]
     Indication: HIV INFECTION
     Dosage: LAST TAKEN ON 25-OCT-2004
     Route: 048
     Dates: start: 20031024
  3. TENOFOVIR [Suspect]
     Indication: HIV INFECTION
     Route: 048
     Dates: start: 20041024
  4. VERAPAMIL HCL [Concomitant]
  5. HYDROCHLOROTHIAZIDE [Concomitant]
  6. LISINOPRIL [Concomitant]
  7. DAPSONE [Concomitant]
  8. TRIAMCINOLONE [Concomitant]

REACTIONS (1)
  - PLATELET COUNT DECREASED [None]
